FAERS Safety Report 4397089-5 (Version None)
Quarter: 2004Q2

REPORT INFORMATION
  Report Type: 
  Country: None (occurrence: None)
  Receive Date: 20040621
  Receipt Date: 20040323
  Transmission Date: 20050107
  Serious: Yes (Other)
  Sender: FDA-Public Use
  Company Number: USA-2004-0014168

PATIENT
  Age: 30 Year
  Sex: Male

DRUGS (2)
  1. OXYCODONE HCL [Suspect]
  2. MARIJUANA (CANNABIS) [Suspect]

REACTIONS (3)
  - IMPAIRED DRIVING ABILITY [None]
  - POLYSUBSTANCE ABUSE [None]
  - ROAD TRAFFIC ACCIDENT [None]
